FAERS Safety Report 5921617-9 (Version None)
Quarter: 2008Q3

REPORT INFORMATION
  Report Type: 
  Country: None (occurrence: None)
  Receive Date: 20080909
  Receipt Date: 20060920
  Transmission Date: 20090109
  Serious: Yes (Other)
  Sender: FDA-Public Use
  Company Number: 163-20785-06100204

PATIENT
  Age: 61 Year
  Sex: Female

DRUGS (2)
  1. THALOMID [Suspect]
     Indication: MULTIPLE MYELOMA
     Dosage: 200 MG, 4 IN 1 D, ORAL ; 200 MG, 4 IN 1 D, ORAL
     Route: 048
     Dates: start: 20031001, end: 20050301
  2. THALOMID [Suspect]
     Indication: MULTIPLE MYELOMA
     Dosage: 200 MG, 4 IN 1 D, ORAL ; 200 MG, 4 IN 1 D, ORAL
     Route: 048
     Dates: start: 20041108

REACTIONS (1)
  - DEEP VEIN THROMBOSIS [None]
